FAERS Safety Report 23658288 (Version 1)
Quarter: 2024Q1

REPORT INFORMATION
  Report Type: Spontaneous
  Country: CN (occurrence: None)
  Receive Date: 20240321
  Receipt Date: 20240321
  Transmission Date: 20240410
  Serious: Yes (Other)
  Sender: FDA-Public Use
  Company Number: 2024A067333

PATIENT
  Age: 36 Year
  Sex: Female
  Weight: 56 kg

DRUGS (1)
  1. SEROQUEL [Suspect]
     Active Substance: QUETIAPINE FUMARATE
     Indication: Injury
     Route: 048
     Dates: start: 20240222, end: 20240222

REACTIONS (7)
  - Overdose [Unknown]
  - Toxicity to various agents [Recovering/Resolving]
  - Blood potassium decreased [Unknown]
  - Amylase increased [Unknown]
  - Electrocardiogram QT prolonged [Unknown]
  - Fatigue [Recovering/Resolving]
  - Somnolence [Recovering/Resolving]

NARRATIVE: CASE EVENT DATE: 20240222
